FAERS Safety Report 11480144 (Version 1)
Quarter: 2015Q3

REPORT INFORMATION
  Report Type: Spontaneous
  Country: US (occurrence: US)
  Receive Date: 20150909
  Receipt Date: 20150909
  Transmission Date: 20151125
  Serious: No
  Sender: FDA-Public Use
  Company Number: US-JAZZ-2014-US-012770

PATIENT
  Sex: Female

DRUGS (2)
  1. XYREM [Suspect]
     Active Substance: SODIUM OXYBATE
     Dosage: 4.5 G, BID
     Route: 048
     Dates: start: 201408
  2. XYREM [Suspect]
     Active Substance: SODIUM OXYBATE
     Indication: POST-TRAUMATIC STRESS DISORDER
     Dosage: 3 G, BID
     Route: 048
     Dates: start: 201407, end: 201408

REACTIONS (2)
  - Product use issue [Unknown]
  - Migraine [Not Recovered/Not Resolved]
